FAERS Safety Report 15201216 (Version 4)
Quarter: 2020Q3

REPORT INFORMATION
  Report Type: Spontaneous
  Country: US (occurrence: US)
  Receive Date: 20180726
  Receipt Date: 20200903
  Transmission Date: 20201102
  Serious: No
  Sender: FDA-Public Use
  Company Number: US-PFIZER INC-2018302328

PATIENT
  Age: 46 Year
  Sex: Female
  Weight: 52.16 kg

DRUGS (1)
  1. LYRICA [Suspect]
     Active Substance: PREGABALIN
     Indication: FIBROMYALGIA
     Dosage: 150 MG, 3X/DAY
     Route: 048

REACTIONS (5)
  - Spinal osteoarthritis [Unknown]
  - Gait disturbance [Unknown]
  - Pain [Unknown]
  - Withdrawal syndrome [Unknown]
  - Stress [Unknown]
